FAERS Safety Report 9105789 (Version 1)
Quarter: 2013Q1

REPORT INFORMATION
  Report Type: Spontaneous
  Country: HR (occurrence: HR)
  Receive Date: 20130221
  Receipt Date: 20130221
  Transmission Date: 20140127
  Serious: Yes (Other)
  Sender: FDA-Public Use
  Company Number: HR-GLAXOSMITHKLINE-B0868231A

PATIENT
  Age: 71 Year
  Sex: Male

DRUGS (1)
  1. REQUIP-MODUTAB [Suspect]
     Indication: EXTRAPYRAMIDAL DISORDER
     Dosage: 4MG PER DAY
     Route: 065
     Dates: start: 2010

REACTIONS (2)
  - Somnolence [Recovered/Resolved]
  - Somnambulism [Recovered/Resolved]
